FAERS Safety Report 6652358-0 (Version None)
Quarter: 2010Q1

REPORT INFORMATION
  Report Type: 
  Country: None (occurrence: None)
  Receive Date: 20100323
  Receipt Date: 20100315
  Transmission Date: 20100710
  Serious: No
  Sender: FDA-Public Use
  Company Number: 008796

PATIENT
  Age: 36 Year

DRUGS (1)
  1. KEPPRA [Suspect]
     Dosage: (500 MG QD INTRAVENOUS (NOT OTHERWISE SPECIFIED))
     Route: 042

REACTIONS (1)
  - WHITE BLOOD CELL COUNT DECREASED [None]
